FAERS Safety Report 6014715-5 (Version None)
Quarter: 2008Q4

REPORT INFORMATION
  Report Type: 
  Country: None (occurrence: None)
  Receive Date: 20081219
  Receipt Date: 20081216
  Transmission Date: 20090506
  Serious: Yes (Life-Threatening, Hospitalization)
  Sender: FDA-Public Use
  Company Number: FR-JNJFOC-20081204222

PATIENT
  Age: 46 Year
  Sex: Female

DRUGS (6)
  1. TOPIRAMATE [Suspect]
     Indication: EPILEPSY
     Route: 048
  2. LAMICTAL [Concomitant]
     Indication: EPILEPSY
  3. KEPPRA [Concomitant]
     Indication: EPILEPSY
  4. ALEPSAL [Concomitant]
     Indication: EPILEPSY
  5. URBANYL [Concomitant]
     Indication: EPILEPSY
  6. DEROXAT [Concomitant]
     Indication: EPILEPSY

REACTIONS (4)
  - BLOOD ELECTROLYTES ABNORMAL [None]
  - EPILEPSY [None]
  - METABOLIC ACIDOSIS [None]
  - THERAPEUTIC RESPONSE DECREASED [None]
